FAERS Safety Report 25434307 (Version 1)
Quarter: 2025Q2

REPORT INFORMATION
  Report Type: Spontaneous
  Country: US (occurrence: US)
  Receive Date: 20250613
  Receipt Date: 20250613
  Transmission Date: 20250716
  Serious: No
  Sender: MAYNE
  Company Number: US-MAYNE PHARMA-2024MYN000569

PATIENT

DRUGS (2)
  1. IMVEXXY [Suspect]
     Active Substance: ESTRADIOL
     Indication: Vulvovaginal dryness
     Dosage: 4 MCG, QD
     Route: 065
  2. IMVEXXY [Suspect]
     Active Substance: ESTRADIOL
     Route: 065

REACTIONS (1)
  - Therapeutic product effect decreased [Unknown]
